FAERS Safety Report 5153833-0 (Version None)
Quarter: 2006Q4

REPORT INFORMATION
  Report Type: 
  Country: None (occurrence: None)
  Receive Date: 20061120
  Receipt Date: 20061004
  Transmission Date: 20070319
  Serious: Yes (Disabling, Other)
  Sender: FDA-Public Use
  Company Number: PHFR2006GB02992

PATIENT
  Age: 52 Year
  Sex: Male

DRUGS (6)
  1. ADALAT [Concomitant]
     Dosage: 20 MG/DAY
     Route: 048
  2. ATORVASTATIN CALCIUM [Concomitant]
     Dosage: 10MG/DAY
     Route: 048
  3. CITALOPRAM HYDROBROMIDE [Concomitant]
     Dosage: 20 MG/DAY
     Route: 048
  4. LACTULOSE [Concomitant]
     Dosage: 10 ML/DAY
     Route: 048
  5. SENNA [Concomitant]
     Dosage: 7.5 MG/DAY
     Route: 048
  6. CLOZARIL [Suspect]
     Indication: SCHIZOPHRENIA
     Dosage: 450 MG/DAY
     Route: 048
     Dates: start: 20051125

REACTIONS (8)
  - ABASIA [None]
  - ACCIDENT [None]
  - CONSTIPATION [None]
  - FALL [None]
  - HAEMOGLOBIN DECREASED [None]
  - HYPERTENSION [None]
  - LYMPHOCYTE COUNT DECREASED [None]
  - TIBIA FRACTURE [None]
